FAERS Safety Report 15073608 (Version 1)
Quarter: 2018Q2

REPORT INFORMATION
  Report Type: Spontaneous
  Country: DE (occurrence: DE)
  Receive Date: 20180627
  Receipt Date: 20180627
  Transmission Date: 20180711
  Serious: Yes (Hospitalization)
  Sender: FDA-Public Use
  Company Number: DE-SUN PHARMACEUTICAL INDUSTRIES LTD-2018RR-176814

PATIENT

DRUGS (9)
  1. OXALIPLATIN. [Suspect]
     Active Substance: OXALIPLATIN
     Indication: COLORECTAL CANCER METASTATIC
     Dosage: 165 MG
     Route: 065
     Dates: start: 20180516
  2. FERROSANOL [Concomitant]
     Active Substance: FERROUS GLUCONATE
     Dosage: 80 MG, TID TO 100 MG, QD
     Route: 048
     Dates: start: 20180514
  3. FLUOROURACIL. [Suspect]
     Active Substance: FLUOROURACIL
     Indication: COLORECTAL CANCER METASTATIC
     Dosage: 4650 MG, UNK
     Route: 042
     Dates: start: 20180516
  4. FOLINIC ACID [Suspect]
     Active Substance: LEUCOVORIN
     Indication: COLORECTAL CANCER METASTATIC
     Dosage: 780 MG, UNK
     Route: 065
     Dates: start: 20180516
  5. PANITUMUMAB SOLUTION FOR INJECTION [Suspect]
     Active Substance: PANITUMUMAB
     Indication: COLORECTAL CANCER METASTATIC
     Dosage: 460 MG, UNK
     Route: 042
     Dates: start: 20180516, end: 20180529
  6. FERROSANOL [Concomitant]
     Active Substance: FERROUS GLUCONATE
     Indication: ANAEMIA
     Dosage: 80 MG, TID TO 100 MG, QD
     Route: 048
     Dates: start: 20180514
  7. FLUOROURACIL. [Suspect]
     Active Substance: FLUOROURACIL
     Indication: COLORECTAL CANCER METASTATIC
     Dosage: 800 MG, UNK
     Route: 040
     Dates: start: 20180516
  8. MONO EMBOLEX [Concomitant]
     Active Substance: CERTOPARIN SODIUM
     Indication: PROPHYLAXIS
     Dosage: 3000 IU, QD
     Route: 058
     Dates: start: 20180516
  9. DOXY M [Concomitant]
     Indication: PROPHYLAXIS
     Dosage: 100 MG, QD
     Route: 048
     Dates: start: 20180516

REACTIONS (5)
  - Dermatitis acneiform [Not Recovered/Not Resolved]
  - Fatigue [Not Recovered/Not Resolved]
  - Constipation [Recovered/Resolved]
  - Lymphocyte count decreased [Unknown]
  - Infection [Unknown]

NARRATIVE: CASE EVENT DATE: 20180517
